FAERS Safety Report 16021822 (Version 1)
Quarter: 2019Q2

REPORT INFORMATION
  Report Type: Spontaneous
  Country: US (occurrence: US)
  Receive Date: 20190301
  Receipt Date: 20190301
  Transmission Date: 20190711
  Serious: Yes (Hospitalization)
  Sender: FDA-Public Use
  Company Number: None

PATIENT
  Sex: Female

DRUGS (5)
  1. NEORAL [Suspect]
     Active Substance: CYCLOSPORINE
     Indication: CHRONIC KIDNEY DISEASE
     Route: 048
     Dates: start: 20160525
  2. NEORAL [Suspect]
     Active Substance: CYCLOSPORINE
     Indication: HYPERTENSION
     Route: 048
     Dates: start: 20160525
  3. RAPAMUNE, HUMALOG [Concomitant]
  4. NEORAL [Suspect]
     Active Substance: CYCLOSPORINE
     Indication: CHRONIC KIDNEY DISEASE
     Route: 048
     Dates: start: 20160525
  5. NEORAL [Suspect]
     Active Substance: CYCLOSPORINE
     Indication: HYPERTENSION
     Route: 048
     Dates: start: 20160525

REACTIONS (1)
  - Hospitalisation [None]
